FAERS Safety Report 17167602 (Version 3)
Quarter: 2020Q1

REPORT INFORMATION
  Report Type: Spontaneous
  Country: JP (occurrence: JP)
  Receive Date: 20191218
  Receipt Date: 20200126
  Transmission Date: 20200409
  Serious: Yes (Death, Other)
  Sender: FDA-Public Use
  Company Number: JP-TEVA-2019-JP-1154339

PATIENT
  Age: 71 Year
  Sex: Male

DRUGS (8)
  1. COMTAN [Concomitant]
     Active Substance: ENTACAPONE
     Dates: end: 20190514
  2. CABASER TABLET [Suspect]
     Active Substance: CABERGOLINE
     Indication: PRODUCT USED FOR UNKNOWN INDICATION
     Dosage: .5 MILLIGRAM DAILY;
     Route: 065
  3. AZILECT [Suspect]
     Active Substance: RASAGILINE MESYLATE
     Indication: PARKINSONISM
     Dosage: .5 MILLIGRAM DAILY;
     Route: 048
     Dates: start: 20181012
  4. NEODOPASTON [Concomitant]
     Active Substance: CARBIDOPA\LEVODOPA
     Dates: end: 20190404
  5. EC DOPARL [Concomitant]
     Active Substance: BENSERAZIDE HYDROCHLORIDE\LEVODOPA
     Dosage: ON AN UNKNOWN DATE, THE DOSE OF LEVODOPA/BENSERAZIDE HYDROCHLORIDE WAS INCREASED FROM 3 T TO 4 T
     Dates: start: 20190405, end: 20190514
  6. NEUPRO [Concomitant]
     Active Substance: ROTIGOTINE
  7. AZILECT [Suspect]
     Active Substance: RASAGILINE MESYLATE
     Dosage: .5 MILLIGRAM DAILY;
     Route: 048
     Dates: start: 20190312, end: 20190705
  8. AZILECT [Suspect]
     Active Substance: RASAGILINE MESYLATE
     Dosage: 1 MILLIGRAM DAILY;
     Route: 048
     Dates: start: 20190706, end: 20191003

REACTIONS (3)
  - Arrhythmia [Fatal]
  - Irritability [Unknown]
  - Movement disorder [Unknown]

NARRATIVE: CASE EVENT DATE: 20190305
